FAERS Safety Report 7190096-9 (Version None)
Quarter: 2010Q4

REPORT INFORMATION
  Report Type: 
  Country: None (occurrence: None)
  Receive Date: 20101223
  Receipt Date: 20101214
  Transmission Date: 20110411
  Serious: No
  Sender: FDA-Public Use
  Company Number: US-PFIZER INC-2010172179

PATIENT
  Sex: Female
  Weight: 88 kg

DRUGS (2)
  1. DIDREX [Suspect]
     Indication: WEIGHT CONTROL
     Dosage: 50 MG, 3X/DAY
     Route: 048
  2. BENZPHETAMINE HYDROCHLORIDE [Suspect]
     Indication: WEIGHT LOSS DIET
     Dosage: 50 MG, 3X/DAY
     Route: 048

REACTIONS (3)
  - DECREASED APPETITE [None]
  - DRUG INEFFECTIVE [None]
  - ENERGY INCREASED [None]
